FAERS Safety Report 6863090-2 (Version None)
Quarter: 2010Q2

REPORT INFORMATION
  Report Type: 
  Country: None (occurrence: None)
  Receive Date: 20100528
  Receipt Date: 20100304
  Transmission Date: 20101027
  Serious: No
  Sender: FDA-Public Use
  Company Number: 008243

PATIENT
  Age: 50 Year
  Sex: Female

DRUGS (1)
  1. LACOSAMIDE [Suspect]
     Dosage: (200 MG BID)

REACTIONS (3)
  - ACNE [None]
  - POLLAKIURIA [None]
  - PRURITUS [None]
